FAERS Safety Report 17420409 (Version 1)
Quarter: 2020Q1

REPORT INFORMATION
  Report Type: Spontaneous
  Country: IT (occurrence: IT)
  Receive Date: 20200214
  Receipt Date: 20200214
  Transmission Date: 20200409
  Serious: Yes (Death)
  Sender: FDA-Public Use
  Company Number: IT-BAYER-2020-022855

PATIENT
  Age: 66 Year
  Sex: Male
  Weight: 79 kg

DRUGS (4)
  1. XOFIGO [Suspect]
     Active Substance: RADIUM RA-223 DICHLORIDE
     Indication: PROSTATE CANCER
     Dates: start: 20191115
  2. ENANTONE [LEUPRORELIN] [Concomitant]
     Active Substance: LEUPROLIDE ACETATE
  3. LASIX [Concomitant]
     Active Substance: FUROSEMIDE
  4. ACIDO ZOLEDRONICO MYLAN [Concomitant]

REACTIONS (3)
  - Cerebral haemorrhage [Fatal]
  - Anaemia [Fatal]
  - Thrombocytopenia [Fatal]

NARRATIVE: CASE EVENT DATE: 20191115
